FAERS Safety Report 4862834-9 (Version None)
Quarter: 2005Q4

REPORT INFORMATION
  Report Type: 
  Country: None (occurrence: None)
  Receive Date: 20051221
  Receipt Date: 20051212
  Transmission Date: 20060501
  Serious: Yes (Death, Other)
  Sender: FDA-Public Use
  Company Number: JP-BRISTOL-MYERS SQUIBB COMPANY-13213020

PATIENT
  Age: 3 Year
  Sex: Male

DRUGS (3)
  1. ENDOXAN [Suspect]
     Indication: RHABDOMYOSARCOMA
  2. ONCOVIN [Suspect]
     Indication: RHABDOMYOSARCOMA
     Route: 042
  3. COSMEGEN [Suspect]
     Indication: RHABDOMYOSARCOMA
     Route: 042

REACTIONS (4)
  - ADENOVIRUS INFECTION [None]
  - CARDIAC FAILURE [None]
  - HEPATIC FAILURE [None]
  - PERICARDITIS [None]
